FAERS Safety Report 6928185-3 (Version None)
Quarter: 2010Q3

REPORT INFORMATION
  Report Type: 
  Country: None (occurrence: None)
  Receive Date: 20100817
  Receipt Date: 20100812
  Transmission Date: 20110219
  Serious: Yes (Death)
  Sender: FDA-Public Use
  Company Number: JP-ROCHE-698588

PATIENT
  Sex: Female
  Weight: 2.7 kg

DRUGS (22)
  1. TOCILIZUMAB [Suspect]
     Indication: RHEUMATOID ARTHRITIS
     Route: 064
     Dates: start: 20081105, end: 20081105
  2. TOCILIZUMAB [Suspect]
     Route: 064
     Dates: start: 20081203, end: 20081203
  3. TOCILIZUMAB [Suspect]
     Route: 064
     Dates: start: 20090107, end: 20090107
  4. TOCILIZUMAB [Suspect]
     Route: 064
     Dates: start: 20090204, end: 20090204
  5. TOCILIZUMAB [Suspect]
     Route: 064
     Dates: start: 20090311, end: 20090311
  6. ISONIAZID [Suspect]
     Indication: PRODUCT USED FOR UNKNOWN INDICATION
     Route: 064
     Dates: start: 20081008, end: 20090407
  7. MEDROL [Concomitant]
     Dosage: IT IS AN ALTERNATE DAY REGIMN AS FOR AND 4MG/2MG/A DAY
     Dates: start: 20040101, end: 20080918
  8. MEDROL [Concomitant]
     Dates: end: 20080918
  9. MEDROL [Concomitant]
     Dates: start: 20080919, end: 20081104
  10. MEDROL [Concomitant]
     Dates: start: 20081105, end: 20081202
  11. MEDROL [Concomitant]
     Dates: start: 20081105, end: 20081202
  12. MEDROL [Concomitant]
     Dates: start: 20081203
  13. MEDROL [Concomitant]
  14. MEDROL [Concomitant]
  15. PYDOXAL [Concomitant]
     Dates: start: 20081008, end: 20090407
  16. ALFAROL [Concomitant]
     Dates: end: 20090203
  17. ASPARA-CA [Concomitant]
  18. TAKEPRON [Concomitant]
     Dates: end: 20090203
  19. ULCERLMIN [Concomitant]
     Route: 064
     Dates: start: 20090204
  20. DEPAS [Concomitant]
     Route: 064
     Dates: start: 20090204, end: 20090204
  21. DEPAS [Concomitant]
     Route: 064
     Dates: start: 20090311, end: 20090311
  22. CALONAL [Concomitant]
     Route: 064
     Dates: start: 20090408

REACTIONS (1)
  - NEONATAL ASPHYXIA [None]
